FAERS Safety Report 25270950 (Version 1)
Quarter: 2025Q2

REPORT INFORMATION
  Report Type: Spontaneous
  Country: DE (occurrence: DE)
  Receive Date: 20250506
  Receipt Date: 20250506
  Transmission Date: 20250717
  Serious: Yes (Congenital Anomaly)
  Sender: CHEPLAPHARM
  Company Number: DE-EMB-M201811678-1

PATIENT
  Sex: Female
  Weight: 3.5499 kg

DRUGS (3)
  1. OLANZAPINE [Suspect]
     Active Substance: OLANZAPINE
     Dosage: SINCE 2013?DAILY DOSE: 5 MILLIGRAM
     Route: 064
     Dates: start: 201809, end: 201905
  2. PROGESTERONE [Suspect]
     Active Substance: PROGESTERONE
     Dosage: APPLICATION POSSIBLY LONGER?DAILY DOSE: 200 MILLIGRAM
     Route: 064
     Dates: start: 201809, end: 201811
  3. FOLIC ACID\IRON\MINERALS\VITAMINS [Suspect]
     Active Substance: FOLIC ACID\IRON\MINERALS\VITAMINS
     Dates: start: 201809, end: 201905

REACTIONS (2)
  - Atrial septal defect [Unknown]
  - Foetal exposure during pregnancy [Recovered/Resolved]
